FAERS Safety Report 9769223 (Version 1)
Quarter: 2013Q4

REPORT INFORMATION
  Report Type: Spontaneous
  Country: US (occurrence: US)
  Receive Date: 20131218
  Receipt Date: 20131218
  Transmission Date: 20140711
  Serious: No
  Sender: FDA-Public Use
  Company Number: US-009507513-1312USA001058

PATIENT
  Age: 33 Year
  Sex: Female
  Weight: 74.83 kg

DRUGS (4)
  1. NUVARING [Suspect]
     Indication: CONTRACEPTION
     Dosage: ONE RING/THREE WEEKS
     Route: 067
  2. IMITREX (SUMATRIPTAN) [Concomitant]
  3. PROPRANOLOL HYDROCHLORIDE [Concomitant]
  4. GABANTIN [Concomitant]

REACTIONS (5)
  - Product shape issue [Unknown]
  - Muscle spasms [Not Recovered/Not Resolved]
  - Dizziness [Not Recovered/Not Resolved]
  - Migraine [Not Recovered/Not Resolved]
  - Weight increased [Unknown]
